FAERS Safety Report 16050804 (Version 1)
Quarter: 2019Q1

REPORT INFORMATION
  Report Type: Spontaneous
  Country: US (occurrence: US)
  Receive Date: 20190308
  Receipt Date: 20190308
  Transmission Date: 20190418
  Serious: No
  Sender: FDA-Public Use
  Company Number: US-PFIZER INC-2019091738

PATIENT
  Age: 64 Year
  Sex: Female

DRUGS (8)
  1. LEVOFLOXACIN. [Suspect]
     Active Substance: LEVOFLOXACIN
     Dosage: UNK
  2. CLARITIN [Suspect]
     Active Substance: LORATADINE
     Dosage: UNK
  3. TEQUIN [Suspect]
     Active Substance: GATIFLOXACIN
     Dosage: UNK
  4. TOLECTIN [Suspect]
     Active Substance: TOLMETIN SODIUM
     Dosage: UNK
  5. PROTONIX [Suspect]
     Active Substance: PANTOPRAZOLE SODIUM
     Dosage: UNK
  6. ALUPENT [Suspect]
     Active Substance: METAPROTERENOL SULFATE
     Dosage: UNK
  7. CECLOR [Suspect]
     Active Substance: CEFACLOR
     Dosage: UNK
  8. BUSPAR [Suspect]
     Active Substance: BUSPIRONE HYDROCHLORIDE
     Dosage: UNK

REACTIONS (1)
  - Drug hypersensitivity [Unknown]
